FAERS Safety Report 9555723 (Version 1)
Quarter: 2013Q3

REPORT INFORMATION
  Report Type: Spontaneous
  Country: US (occurrence: None)
  Receive Date: 20130726
  Receipt Date: 20130726
  Transmission Date: 20140515
  Serious: Yes (Hospitalization)
  Sender: FDA-Public Use
  Company Number: UTC-023857

PATIENT
  Age: 23 Year
  Sex: Male
  Weight: 61.82 kg

DRUGS (5)
  1. REMODULIN [Suspect]
     Indication: COR PULMONALE CHRONIC
     Dosage: 46.08 UG.KG )0.032 UG/KG, 1 IN 1 MIN), SUBCUTANEOUS
     Route: 058
     Dates: start: 20120323
  2. REMODULIN [Suspect]
     Indication: PULMONARY HYPERTENSION
     Dosage: 46.08 UG.KG )0.032 UG/KG, 1 IN 1 MIN), SUBCUTANEOUS
     Route: 058
     Dates: start: 20120323
  3. COUMADIN (WARFARIN SODIUM) [Concomitant]
  4. REVATIO (SILDENAFIL CITRATE) [Concomitant]
  5. TRACLEER (BOSENTAN) [Concomitant]

REACTIONS (1)
  - Infusion site haematoma [None]
